FAERS Safety Report 14853567 (Version 1)
Quarter: 2018Q2

REPORT INFORMATION
  Report Type: Spontaneous
  Country: ES (occurrence: ES)
  Receive Date: 20180507
  Receipt Date: 20180507
  Transmission Date: 20180711
  Serious: Yes (Other)
  Sender: FDA-Public Use
  Company Number: ES-CURIUM PHARMACEUTICALS-201200326

PATIENT
  Age: 48 Year
  Sex: Female

DRUGS (9)
  1. PREDNISONE. [Concomitant]
     Active Substance: PREDNISONE
  2. TACROLIMUS. [Concomitant]
     Active Substance: TACROLIMUS
  3. ULTRA-TECHNEKOW FM [Suspect]
     Active Substance: TECHNETIUM TC-99M SODIUM PERTECHNETATE
     Indication: RADIOISOTOPE SCAN
     Dosage: 9.15 MCI, SINGLE??NUMBER OF SEPARATE DOSAGES: 1
     Route: 042
     Dates: start: 20120518, end: 20120518
  4. OMEPRAZOLE. [Concomitant]
     Active Substance: OMEPRAZOLE
  5. MYCOPHENOLATE MOFETIL. [Concomitant]
     Active Substance: MYCOPHENOLATE MOFETIL
  6. GANCICLOVIR. [Concomitant]
     Active Substance: GANCICLOVIR
  7. FUROSEMIDE. [Concomitant]
     Active Substance: FUROSEMIDE
  8. TECHNESCAN MAG3 [Suspect]
     Active Substance: TECHNETIUM TC-99M TIATIDE
     Indication: RADIOISOTOPE SCAN
     Dosage: UNK, SINGLE
     Route: 042
     Dates: start: 20120518, end: 20120518
  9. MYCOSTATIN [Concomitant]
     Active Substance: NYSTATIN

REACTIONS (1)
  - Sialoadenitis [Recovering/Resolving]

NARRATIVE: CASE EVENT DATE: 20120518
